FAERS Safety Report 24749997 (Version 1)
Quarter: 2024Q4

REPORT INFORMATION
  Report Type: Spontaneous
  Country: US (occurrence: US)
  Receive Date: 20241218
  Receipt Date: 20241218
  Transmission Date: 20250115
  Serious: Yes (Other)
  Sender: SANOFI AVENTIS
  Company Number: US-SANOFI-02337810

PATIENT
  Age: 48 Year
  Sex: Male

DRUGS (1)
  1. LANTUS SOLOSTAR [Suspect]
     Active Substance: INSULIN GLARGINE
     Indication: Diabetes mellitus
     Dosage: 18 U, QD

REACTIONS (4)
  - Diabetes mellitus inadequate control [Unknown]
  - Visual impairment [Unknown]
  - Product storage error [Unknown]
  - Drug ineffective [Unknown]
